FAERS Safety Report 8405883-6 (Version None)
Quarter: 2012Q2

REPORT INFORMATION
  Report Type: 
  Country: None (occurrence: None)
  Receive Date: 20120529
  Receipt Date: 20060123
  Transmission Date: 20120825
  Serious: Yes (Hospitalization)
  Sender: FDA-Public Use
  Company Number: 15691-USA-06-0245

PATIENT
  Age: 92 Year
  Sex: Female

DRUGS (7)
  1. VERAPAMIL - SLOW RELEASE (VERAPAMIL HYDROCHLORIDE) [Concomitant]
  2. ACCUPRIL [Concomitant]
  3. COUMADIN [Concomitant]
  4. FUROSEMIDE [Concomitant]
  5. SERAX [Concomitant]
  6. METOPROLOL TARTRATE [Concomitant]
  7. TOLVAPTAN (TOLVAPTAN(V4.1)) 30MG [Suspect]

REACTIONS (8)
  - ATRIAL FLUTTER [None]
  - CONDITION AGGRAVATED [None]
  - RENAL FAILURE [None]
  - ATRIAL FIBRILLATION [None]
  - URINARY TRACT INFECTION [None]
  - HIATUS HERNIA [None]
  - PLEURAL EFFUSION [None]
  - ATELECTASIS [None]
